FAERS Safety Report 4399580-4 (Version None)
Quarter: 2004Q3

REPORT INFORMATION
  Report Type: 
  Country: None (occurrence: None)
  Receive Date: 20040716
  Receipt Date: 20030121
  Transmission Date: 20050211
  Serious: Yes (Hospitalization, Disabling, Other)
  Sender: FDA-Public Use
  Company Number: US-MERCK-0301USA02073

PATIENT
  Age: 62 Year
  Sex: Female

DRUGS (8)
  1. XANAX [Concomitant]
     Indication: DEPRESSION
     Route: 065
     Dates: start: 20000325
  2. VALIUM [Concomitant]
     Indication: DEPRESSION
     Route: 065
     Dates: start: 20000305
  3. IBUPROFEN [Concomitant]
     Indication: ARTHRITIS
     Route: 065
     Dates: start: 20010501
  4. HUMULIN N [Concomitant]
     Route: 065
  5. SYNTHROID [Concomitant]
     Indication: THYROID DISORDER
     Route: 065
     Dates: start: 20000801
  6. VIOXX [Suspect]
     Indication: PAIN
     Route: 048
     Dates: start: 20010409, end: 20020221
  7. VIOXX [Suspect]
     Indication: ARTHRITIS
     Route: 048
     Dates: start: 20010409, end: 20020221
  8. DIOVAN [Concomitant]
     Route: 065
     Dates: start: 20000701

REACTIONS (11)
  - ANGINA PECTORIS [None]
  - CORONARY ARTERY DISEASE [None]
  - CYST [None]
  - DIABETES MELLITUS [None]
  - DRUG INEFFECTIVE [None]
  - HYPERTENSION [None]
  - LUNG DISORDER [None]
  - MYOCARDIAL INFARCTION [None]
  - NON-CARDIAC CHEST PAIN [None]
  - OEDEMA PERIPHERAL [None]
  - OSTEOARTHRITIS [None]
